FAERS Safety Report 7157185-6 (Version None)
Quarter: 2010Q4

REPORT INFORMATION
  Report Type: 
  Country: None (occurrence: None)
  Receive Date: 20101214
  Receipt Date: 20091217
  Transmission Date: 20110411
  Serious: No
  Sender: FDA-Public Use
  Company Number: US-ASTRAZENECA-2009SE32631

PATIENT
  Age: 80 Year
  Sex: Male
  Weight: 69.9 kg

DRUGS (6)
  1. CRESTOR [Suspect]
     Route: 048
     Dates: start: 20080101
  2. METOPROLOL SUCCINATE [Concomitant]
     Indication: HYPERTENSION
  3. LIPITOR [Concomitant]
  4. PRAVASTATIN [Concomitant]
  5. ZOCOR [Concomitant]
  6. VIAGRA [Concomitant]

REACTIONS (3)
  - ANORGASMIA [None]
  - ERECTILE DYSFUNCTION [None]
  - NON-CONSUMMATION [None]
